FAERS Safety Report 5153172-8 (Version None)
Quarter: 2006Q4

REPORT INFORMATION
  Report Type: 
  Country: None (occurrence: None)
  Receive Date: 20061113
  Receipt Date: 20061102
  Transmission Date: 20070319
  Serious: Yes (Death)
  Sender: FDA-Public Use
  Company Number: 430013E06ITA

PATIENT
  Age: 73 Year
  Sex: Male

DRUGS (3)
  1. NOVANTRONE [Suspect]
     Dosage: 12 MG
     Dates: start: 20061018, end: 20061020
  2. ETOPOSIDE [Suspect]
     Dosage: 170 MG
     Dates: start: 20061018, end: 20061020
  3. CYTARABINE [Suspect]
     Dosage: 170 MG
     Dates: start: 20061018, end: 20061020

REACTIONS (2)
  - COMA [None]
  - HEAD INJURY [None]
